FAERS Safety Report 6875967-2 (Version None)
Quarter: 2010Q3

REPORT INFORMATION
  Report Type: 
  Country: None (occurrence: None)
  Receive Date: 20100727
  Receipt Date: 20100713
  Transmission Date: 20110219
  Serious: Yes (Hospitalization)
  Sender: FDA-Public Use
  Company Number: PHHY2010FR46373

PATIENT
  Age: 82 Year
  Sex: Female

DRUGS (2)
  1. GLEEVEC [Suspect]
     Indication: GASTROINTESTINAL STROMAL TUMOUR
     Dosage: 400 MG 1 DF DAILY
     Dates: start: 20100708
  2. TPN [Concomitant]

REACTIONS (4)
  - HYPOPHAGIA [None]
  - NAUSEA [None]
  - RASH GENERALISED [None]
  - VOMITING [None]
